FAERS Safety Report 9601872 (Version 1)
Quarter: 2013Q4

REPORT INFORMATION
  Report Type: Spontaneous
  Country: FR (occurrence: None)
  Receive Date: 20131002
  Receipt Date: 20131002
  Transmission Date: 20140711
  Serious: Yes (Hospitalization)
  Sender: FDA-Public Use
  Company Number: SYM-2013-11138

PATIENT
  Age: 46 Year
  Sex: Male

DRUGS (11)
  1. 5 FU [Suspect]
     Indication: COLORECTAL CANCER METASTATIC
     Route: 040
     Dates: start: 20130130, end: 20130130
  2. IRINOTECAN [Suspect]
     Indication: COLORECTAL CANCER METASTATIC
     Route: 041
     Dates: start: 20130130, end: 20130130
  3. LEUCOVORIN (FOLINIC ACID) (SOLUTION FOR INFUSION) (FOLINIC ACID) [Suspect]
     Indication: COLORECTAL CANCER METASTATIC
     Route: 041
     Dates: start: 20130130, end: 20130130
  4. AFLIBERCEPT [Suspect]
     Indication: COLORECTAL CANCER METASTATIC
     Route: 041
     Dates: start: 20130130, end: 20130130
  5. BISPHOSPHONATES [Concomitant]
  6. ANALGESICS [Concomitant]
  7. ANXIOLYTICS [Concomitant]
  8. ALL OTHER THERAPEUTIC PRODUCTS [Concomitant]
  9. SEROTONIN ANTAGONISTS [Concomitant]
  10. HEPARIN [Concomitant]
  11. ANTICHOLINERGICS [Concomitant]

REACTIONS (1)
  - Diarrhoea [None]
